FAERS Safety Report 8794549 (Version 2)
Quarter: 2012Q4

REPORT INFORMATION
  Report Type: 
  Country: CA (occurrence: CA)
  Receive Date: 20120917
  Receipt Date: 20120924
  Transmission Date: 20130627
  Serious: Yes (Other)
  Sender: FDA-Public Use
  Company Number: PHHY2011CA49944

PATIENT
  Sex: Female

DRUGS (2)
  1. ACLASTA [Suspect]
     Indication: OSTEOPOROSIS
     Route: 042
     Dates: start: 20100601
  2. ACLASTA [Suspect]
     Route: 042
     Dates: start: 20110831

REACTIONS (3)
  - Microalbuminuria [Unknown]
  - Creatinine urine increased [Unknown]
  - Blood potassium decreased [Unknown]
